FAERS Safety Report 8254084-3 (Version None)
Quarter: 2012Q2

REPORT INFORMATION
  Report Type: 
  Country: None (occurrence: None)
  Receive Date: 20120402
  Receipt Date: 20120320
  Transmission Date: 20120825
  Serious: No
  Sender: FDA-Public Use
  Company Number: US-AMGEN-USASP2012017973

PATIENT
  Age: 56 Year
  Sex: Female

DRUGS (1)
  1. ENBREL [Suspect]
     Indication: ANKYLOSING SPONDYLITIS
     Dosage: 50 MG, QWK
     Dates: start: 20070801

REACTIONS (8)
  - FATIGUE [None]
  - COUGH [None]
  - UPPER RESPIRATORY TRACT CONGESTION [None]
  - PYREXIA [None]
  - SINUS CONGESTION [None]
  - PRODUCTIVE COUGH [None]
  - OROPHARYNGEAL PAIN [None]
  - CHILLS [None]
